FAERS Safety Report 21802801 (Version 1)
Quarter: 2022Q4

REPORT INFORMATION
  Report Type: Spontaneous
  Country: JP (occurrence: JP)
  Receive Date: 20221231
  Receipt Date: 20221231
  Transmission Date: 20230112
  Serious: Yes (Death, Other)
  Sender: FDA-Public Use
  Company Number: JP-MSD-M2022-55527

PATIENT
  Age: 9 Decade
  Sex: Female

DRUGS (1)
  1. LAGEVRIO [Suspect]
     Active Substance: MOLNUPIRAVIR
     Indication: COVID-19 treatment
     Dosage: 800 MILLIGRAM, BID
     Route: 048
     Dates: start: 20221214, end: 202212

REACTIONS (3)
  - Sepsis [Fatal]
  - Pneumonia [Fatal]
  - COVID-19 [Unknown]

NARRATIVE: CASE EVENT DATE: 20221201
